FAERS Safety Report 7791962-3 (Version None)
Quarter: 2011Q4

REPORT INFORMATION
  Report Type: 
  Country: None (occurrence: None)
  Receive Date: 20111003
  Receipt Date: 20110928
  Transmission Date: 20120403
  Serious: Yes (Hospitalization)
  Sender: FDA-Public Use
  Company Number: FR-PFIZER INC-2011230663

PATIENT
  Age: 70 Year
  Sex: Male
  Weight: 81 kg

DRUGS (5)
  1. PROGRAF [Concomitant]
  2. PIPERACILLIN AND TAZOBACTAM [Suspect]
     Dosage: 4 G, 3X/DAY
     Route: 042
     Dates: start: 20110829, end: 20110831
  3. SOLU-MEDROL [Concomitant]
     Dosage: 80 MG, 1X/DAY
     Route: 042
  4. BACTRIM [Suspect]
     Dosage: 1 DF, 3X/DAY
     Route: 042
     Dates: start: 20110828, end: 20110831
  5. MYCOPHENOLATE MOFETIL (CELLCEPT) [Concomitant]

REACTIONS (3)
  - RASH [None]
  - DRUG HYPERSENSITIVITY [None]
  - HEPATOCELLULAR INJURY [None]
